FAERS Safety Report 16712969 (Version 1)
Quarter: 2019Q3

REPORT INFORMATION
  Report Type: Report from Study
  Country: FR (occurrence: FR)
  Receive Date: 20190817
  Receipt Date: 20190817
  Transmission Date: 20191004
  Serious: Yes (Other)
  Sender: FDA-Public Use
  Company Number: FR-AUROBINDO-AUR-APL-2019-054083

PATIENT

DRUGS (1)
  1. CETIRIZINE FILM-COATED TABLET 10 MG [Suspect]
     Active Substance: CETIRIZINE HYDROCHLORIDE
     Indication: PRODUCT USED FOR UNKNOWN INDICATION
     Dosage: 2 DOSAGE FORM (0.49 MG/KG)
     Route: 048

REACTIONS (6)
  - Accidental overdose [Unknown]
  - Disorientation [Unknown]
  - Speech disorder [Unknown]
  - Headache [Unknown]
  - Toxicity to various agents [Unknown]
  - Confusional state [Unknown]
